FAERS Safety Report 9540235 (Version 3)
Quarter: 2013Q4

REPORT INFORMATION
  Report Type: Spontaneous
  Country: JP (occurrence: JP)
  Receive Date: 20130920
  Receipt Date: 20131127
  Transmission Date: 20140711
  Serious: Yes (Hospitalization, Other)
  Sender: FDA-Public Use
  Company Number: JP-ROCHE-1237032

PATIENT
  Age: 20 Year
  Sex: Female
  Weight: 32 kg

DRUGS (10)
  1. ACTEMRA [Suspect]
     Indication: JUVENILE IDIOPATHIC ARTHRITIS
     Dosage: 267-275MG
     Route: 041
     Dates: start: 20120530
  2. AZULFIDINE-EN [Concomitant]
     Indication: JUVENILE IDIOPATHIC ARTHRITIS
     Dosage: 500-750MG
     Route: 065
  3. CLINORIL [Concomitant]
     Indication: JUVENILE IDIOPATHIC ARTHRITIS
     Route: 065
     Dates: start: 20130426
  4. METHOTREXATE [Concomitant]
     Indication: JUVENILE IDIOPATHIC ARTHRITIS
     Route: 065
     Dates: end: 20120627
  5. BONALON [Concomitant]
     Indication: OSTEOPOROSIS
     Route: 048
  6. ONEALFA [Concomitant]
     Indication: OSTEOPOROSIS
     Route: 048
  7. GASTER (JAPAN) [Concomitant]
     Indication: PROPHYLAXIS
     Route: 048
  8. MUCOSTA [Concomitant]
     Indication: PROPHYLAXIS
     Route: 048
  9. BAKTAR [Concomitant]
     Indication: PROPHYLAXIS
     Route: 048
  10. PREDNISOLONE [Concomitant]
     Indication: JUVENILE IDIOPATHIC ARTHRITIS
     Route: 065
     Dates: end: 20130403

REACTIONS (5)
  - Histiocytosis haematophagic [Recovering/Resolving]
  - Diarrhoea [Recovering/Resolving]
  - Gastroenteritis [Recovering/Resolving]
  - Sepsis [Recovering/Resolving]
  - Cytokine storm [Recovering/Resolving]
